FAERS Safety Report 8987183 (Version 2)
Quarter: 2013Q1

REPORT INFORMATION
  Report Type: Spontaneous
  Country: US (occurrence: US)
  Receive Date: 20121227
  Receipt Date: 20130227
  Transmission Date: 20140127
  Serious: No
  Sender: FDA-Public Use
  Company Number: US-009507513-1212USA006968

PATIENT
  Sex: Female
  Weight: 97.51 kg

DRUGS (2)
  1. IMPLANON [Suspect]
     Indication: CONTRACEPTION
     Dosage: UNK
     Route: 059
  2. ABILIFY [Concomitant]

REACTIONS (2)
  - Weight increased [Not Recovered/Not Resolved]
  - Medical device complication [Recovered/Resolved]
